FAERS Safety Report 8643234 (Version 2)
Quarter: 2012Q4

REPORT INFORMATION
  Report Type: Report from Study
  Country: US (occurrence: US)
  Receive Date: 20120629
  Receipt Date: 20121217
  Transmission Date: 20130627
  Serious: Yes (Hospitalization, Other)
  Sender: FDA-Public Use
  Company Number: US-GENZYME-THYM-1003288

PATIENT
  Age: 53 Year
  Sex: Female
  Weight: 78.5 kg

DRUGS (40)
  1. THYMOGLOBULIN [Suspect]
     Indication: TRANSPLANT REJECTION
     Dosage: UNK
     Route: 065
     Dates: start: 20110907, end: 20110915
  2. PROGRAF [Concomitant]
     Indication: PRODUCT USED FOR UNKNOWN INDICATION
     Dosage: 9 mg, UNK
     Route: 065
  3. PROGRAF [Concomitant]
     Dosage: 7 mg, UNK
     Route: 065
  4. PROGRAF [Concomitant]
     Dosage: 8 mg, bid
     Route: 065
  5. FOLIC ACID [Concomitant]
     Indication: PRODUCT USED FOR UNKNOWN INDICATION
     Dosage: 1 mg, takes 5 tablet by mouth daily
     Route: 048
     Dates: start: 20120320
  6. BENADRYL [Concomitant]
     Indication: PRODUCT USED FOR UNKNOWN INDICATION
     Dosage: 25 mg, once
     Route: 048
     Dates: start: 20120512, end: 20120512
  7. DELTASONE [Concomitant]
     Indication: PRODUCT USED FOR UNKNOWN INDICATION
     Dosage: 5 mg, qd
     Route: 048
     Dates: start: 20110914
  8. SUBLIMAZE [Concomitant]
     Indication: PAIN
     Dosage: 25-100 mcg, once
     Route: 042
     Dates: start: 20120511, end: 20120511
  9. LIDOCAINE [Concomitant]
     Indication: LOCAL ANAESTHESIA
     Dosage: 1-20 ml, once
     Route: 065
     Dates: start: 20120511, end: 20120511
  10. VERSED [Concomitant]
     Indication: PRODUCT USED FOR UNKNOWN INDICATION
     Dosage: 0.25-2 mg, once
     Route: 042
     Dates: start: 20120511, end: 20120511
  11. SODIUM CHLORIDE [Concomitant]
     Indication: PRODUCT USED FOR UNKNOWN INDICATION
     Dosage: 1000 ml, UNK
     Route: 042
     Dates: start: 20120511, end: 20120511
  12. TYLENOL [Concomitant]
     Indication: PYREXIA
     Dosage: 650 mg, q4hr
     Route: 048
     Dates: start: 20120512, end: 20120513
  13. TYLENOL [Concomitant]
     Indication: HEADACHE
  14. CHAPSTICK [Concomitant]
     Indication: DRY SKIN
     Dosage: UNK
     Route: 061
     Dates: start: 20120512, end: 20120513
  15. BENTYL [Concomitant]
     Indication: PRODUCT USED FOR UNKNOWN INDICATION
     Dosage: 10 mg, tid
     Route: 048
     Dates: start: 20120511, end: 20120513
  16. BENTYL [Concomitant]
     Dosage: 10 mg, tid
     Route: 048
     Dates: start: 20120223
  17. TIAZAC [Concomitant]
     Indication: PRODUCT USED FOR UNKNOWN INDICATION
     Dosage: 120 mg, qd
     Route: 048
     Dates: start: 20120512, end: 20120513
  18. BENADRYL [Concomitant]
     Indication: PRURITUS
     Dosage: 25 mg, qd
     Route: 048
     Dates: start: 20120511, end: 20120513
  19. FOLVITE [Concomitant]
     Indication: PRODUCT USED FOR UNKNOWN INDICATION
     Dosage: 5 mg, qd
     Route: 048
     Dates: start: 20120512, end: 20120513
  20. LOPRESSOR [Concomitant]
     Indication: PRODUCT USED FOR UNKNOWN INDICATION
     Dosage: 25 mg, qd
     Route: 048
     Dates: start: 20120512
  21. CELLCEPT [Concomitant]
     Indication: PREMEDICATION
     Dosage: 750 mg, qid
     Route: 048
     Dates: start: 20120511, end: 20120513
  22. MYCOSTATIN [Concomitant]
     Indication: PRODUCT USED FOR UNKNOWN INDICATION
     Dosage: 5000000 U, tid
     Route: 048
     Dates: start: 20120511, end: 20120513
  23. PERCOCET [Concomitant]
     Indication: PAIN
     Dosage: 5-325 mg per tablet 1-2 tablet; every 6 hours
     Route: 048
     Dates: start: 20120511, end: 20120513
  24. PROTONIX [Concomitant]
     Indication: PRODUCT USED FOR UNKNOWN INDICATION
     Dosage: 40 mg, bid
     Route: 048
     Dates: start: 20120511, end: 20120513
  25. DELTASONE [Concomitant]
     Indication: PRODUCT USED FOR UNKNOWN INDICATION
     Dosage: 5 mg, qd
     Route: 048
     Dates: start: 20120512, end: 20120513
  26. PHENERGAN [Concomitant]
     Indication: NAUSEA
     Dosage: 25 mg, qid
     Route: 048
     Dates: start: 20120511, end: 20120513
  27. SODIUM CHLORIDE [Concomitant]
     Indication: PRODUCT USED FOR UNKNOWN INDICATION
     Dosage: 100ml/hour, continous
     Route: 042
     Dates: start: 20120511, end: 20120512
  28. BACTRIM [Concomitant]
     Indication: PRODUCT USED FOR UNKNOWN INDICATION
     Dosage: 400-80 mg, 3xw
     Route: 048
     Dates: start: 20120514
  29. PROGRAF [Concomitant]
     Indication: PRODUCT USED FOR UNKNOWN INDICATION
     Dosage: 7 mg, bid
     Route: 048
     Dates: start: 20120513, end: 20120513
  30. PROGRAF [Concomitant]
     Dosage: 9 mg, bid
     Route: 048
     Dates: start: 20120511, end: 20120512
  31. PROGRAF [Concomitant]
     Dosage: 9 mg, bid
     Route: 048
     Dates: start: 20120511, end: 20120511
  32. VALCYTE [Concomitant]
     Indication: PRODUCT USED FOR UNKNOWN INDICATION
     Dosage: 450 mg, qd
     Route: 048
     Dates: start: 20120512, end: 20120513
  33. VALCYTE [Concomitant]
     Indication: PRODUCT USED FOR UNKNOWN INDICATION
     Dosage: 450 mg, qd
     Route: 048
     Dates: start: 20110914
  34. VALCYTE [Concomitant]
     Dosage: 400 mg, qd
     Route: 065
  35. VENTOLIN HFA [Concomitant]
     Indication: WHEEZING
     Dosage: 90mcg/actuation, 2 puffs by inhalation every 6 hours
     Route: 065
     Dates: start: 20110916
  36. BENTYL [Concomitant]
     Indication: PRODUCT USED FOR UNKNOWN INDICATION
     Dosage: 10 mg, tid
     Route: 048
     Dates: start: 20120223
  37. CELLCEPT [Concomitant]
     Indication: PRODUCT USED FOR UNKNOWN INDICATION
     Dosage: 250 mg, qid
     Route: 048
     Dates: start: 20120223
  38. CELLCEPT [Concomitant]
     Dosage: 750 mg, qid
     Route: 048
  39. PROTONIX [Concomitant]
     Indication: PRODUCT USED FOR UNKNOWN INDICATION
     Dosage: 40 mg, bid
     Dates: start: 20120223, end: 20120523
  40. TIAZAC [Concomitant]
     Indication: PRODUCT USED FOR UNKNOWN INDICATION
     Dosage: 120 mg, 1 cap daily by mouth
     Route: 048
     Dates: start: 20120418

REACTIONS (4)
  - Haemorrhage urinary tract [Unknown]
  - Blood creatinine increased [Recovered/Resolved]
  - Complications of transplanted kidney [Recovered/Resolved]
  - Haemoglobin decreased [Recovered/Resolved]
